FAERS Safety Report 6503676-8 (Version None)
Quarter: 2009Q4

REPORT INFORMATION
  Report Type: 
  Country: None (occurrence: None)
  Receive Date: 20091217
  Receipt Date: 20091207
  Transmission Date: 20100525
  Serious: Yes (Hospitalization)
  Sender: FDA-Public Use
  Company Number: FR-NOVOPROD-301851

PATIENT
  Age: 64 Year
  Sex: Male

DRUGS (2)
  1. LEVEMIR [Suspect]
     Indication: DIABETES MELLITUS
     Dosage: 17 U, QD
     Route: 058
     Dates: start: 20090501, end: 20090620
  2. APIDRA [Suspect]
     Indication: DIABETES MELLITUS
     Dosage: 27 U, QD
     Dates: start: 20090501, end: 20090620

REACTIONS (1)
  - VASCULITIS NECROTISING [None]
